FAERS Safety Report 18708381 (Version 1)
Quarter: 2021Q1

REPORT INFORMATION
  Report Type: Spontaneous
  Country: US (occurrence: US)
  Receive Date: 20210106
  Receipt Date: 20210106
  Transmission Date: 20210419
  Serious: No
  Sender: FDA-Public Use
  Company Number: US-ABBVIE-20K-163-3350984-00

PATIENT
  Age: 83 Year
  Sex: Female
  Weight: 70.37 kg

DRUGS (4)
  1. OXYCONTIN [Concomitant]
     Active Substance: OXYCODONE HYDROCHLORIDE
     Indication: MUSCLE SPASMS
  2. VENCLEXTA [Suspect]
     Active Substance: VENETOCLAX
     Indication: CHRONIC LYMPHOCYTIC LEUKAEMIA
     Dosage: 10 MG WEEK 1
     Route: 048
     Dates: start: 20200327
  3. OXYCONTIN [Concomitant]
     Active Substance: OXYCODONE HYDROCHLORIDE
     Indication: PAIN
  4. IMODIUM [Concomitant]
     Active Substance: LOPERAMIDE HYDROCHLORIDE
     Indication: DIARRHOEA

REACTIONS (10)
  - Feeling hot [Unknown]
  - Diarrhoea [Not Recovered/Not Resolved]
  - Fluid intake reduced [Recovered/Resolved]
  - Muscle spasms [Unknown]
  - Vomiting [Unknown]
  - Abdominal discomfort [Unknown]
  - Pyrexia [Unknown]
  - Decreased appetite [Unknown]
  - Dyspepsia [Not Recovered/Not Resolved]
  - Myalgia [Recovering/Resolving]

NARRATIVE: CASE EVENT DATE: 2020
